FAERS Safety Report 22588833 (Version 1)
Quarter: 2023Q2

REPORT INFORMATION
  Report Type: Spontaneous
  Country: US (occurrence: None)
  Receive Date: 20230608
  Receipt Date: 20230608
  Transmission Date: 20230722
  Serious: Yes (Hospitalization, Other)
  Sender: FDA-Public Use
  Company Number: None

PATIENT
  Sex: Male

DRUGS (1)
  1. XELODA [Suspect]
     Active Substance: CAPECITABINE
     Dosage: FREQUENCY : TWICE A DAY;?
     Route: 048

REACTIONS (7)
  - Pulmonary thrombosis [None]
  - Cough [None]
  - Gait disturbance [None]
  - Muscular weakness [None]
  - Dysarthria [None]
  - Abdominal discomfort [None]
  - Lung disorder [None]
